FAERS Safety Report 6936289-4 (Version None)
Quarter: 2010Q3

REPORT INFORMATION
  Report Type: 
  Country: None (occurrence: None)
  Receive Date: 20100818
  Receipt Date: 20100809
  Transmission Date: 20110219
  Serious: Yes (Death, Life-Threatening, Hospitalization)
  Sender: FDA-Public Use
  Company Number: 104539

PATIENT
  Age: 61 Year
  Sex: Male

DRUGS (1)
  1. LEUCOVORIN CALCIUM [Suspect]
     Indication: GASTROINTESTINAL CANCER METASTATIC
     Dosage: 744MG IV
     Route: 042
     Dates: start: 20100622

REACTIONS (6)
  - DEHYDRATION [None]
  - GASTROINTESTINAL CANCER METASTATIC [None]
  - HEPATIC FAILURE [None]
  - HYPOGLYCAEMIA [None]
  - MALIGNANT NEOPLASM PROGRESSION [None]
  - RENAL FAILURE [None]
